FAERS Safety Report 4984396-8 (Version None)
Quarter: 2006Q2

REPORT INFORMATION
  Report Type: 
  Country: None (occurrence: None)
  Receive Date: 20060420
  Receipt Date: 20060410
  Transmission Date: 20061013
  Serious: Yes (Death)
  Sender: FDA-Public Use
  Company Number: 2006050275

PATIENT
  Age: 12 Month

DRUGS (1)
  1. ZYVOX [Suspect]
     Indication: STAPHYLOCOCCAL INFECTION
     Dosage: 200 MG, INTRAVENOUS
     Route: 042
     Dates: start: 20060318, end: 20060322

REACTIONS (3)
  - CONDITION AGGRAVATED [None]
  - ENDOCARDITIS STAPHYLOCOCCAL [None]
  - STAPHYLOCOCCAL SEPSIS [None]
